FAERS Safety Report 24199654 (Version 1)
Quarter: 2024Q3

REPORT INFORMATION
  Report Type: Spontaneous
  Country: FR (occurrence: FR)
  Receive Date: 20240812
  Receipt Date: 20240812
  Transmission Date: 20241016
  Serious: Yes (Hospitalization, Other)
  Sender: DR REDDYS
  Company Number: None

PATIENT
  Age: 79 Year
  Sex: Female
  Weight: 75 kg

DRUGS (4)
  1. DAPTOMYCIN [Suspect]
     Active Substance: DAPTOMYCIN
     Indication: Intervertebral discitis
     Route: 042
     Dates: start: 20240314, end: 20240417
  2. CEFEPIME [Suspect]
     Active Substance: CEFEPIME HYDROCHLORIDE
     Indication: Intervertebral discitis
     Dosage: 2G X3/D
     Route: 042
     Dates: start: 20240321, end: 20240417
  3. AMOXICILLIN [Suspect]
     Active Substance: AMOXICILLIN
     Indication: Intervertebral discitis
     Dosage: 4G X3/D
     Route: 042
     Dates: start: 20240321, end: 20240417
  4. AMOXICILLIN [Suspect]
     Active Substance: AMOXICILLIN
     Dosage: 1G X3/D
     Route: 048
     Dates: start: 20240424, end: 20240430

REACTIONS (3)
  - Acute kidney injury [Recovered/Resolved]
  - Crystalluria [Recovered/Resolved]
  - Encephalopathy [Recovered/Resolved]

NARRATIVE: CASE EVENT DATE: 20240416
